FAERS Safety Report 26011049 (Version 1)
Quarter: 2025Q4

REPORT INFORMATION
  Report Type: Spontaneous
  Country: US (occurrence: US)
  Receive Date: 20251107
  Receipt Date: 20251107
  Transmission Date: 20260118
  Serious: No
  Sender: GILEAD
  Company Number: US-GILEAD-2025-0729276

PATIENT
  Age: 33 Year
  Sex: Female

DRUGS (2)
  1. YEZTUGO [Suspect]
     Active Substance: LENACAPAVIR SODIUM
     Indication: Prophylaxis against HIV infection
     Dosage: (INJECTION FORMULATION)
     Route: 065
     Dates: start: 20250918
  2. YEZTUGO [Suspect]
     Active Substance: LENACAPAVIR SODIUM
     Indication: Prophylaxis against HIV infection
     Dosage: (TABLET FORMULATION)
     Route: 065

REACTIONS (3)
  - Injection site discharge [Unknown]
  - Injection site pain [Unknown]
  - Administration site wound [Unknown]
